FAERS Safety Report 8220070-2 (Version None)
Quarter: 2012Q1

REPORT INFORMATION
  Report Type: 
  Country: None (occurrence: None)
  Receive Date: 20120320
  Receipt Date: 20120312
  Transmission Date: 20120608
  Serious: Yes (Hospitalization)
  Sender: FDA-Public Use
  Company Number: US-BIOGENIDEC-2012BI004916

PATIENT
  Age: 40 Year
  Sex: Female

DRUGS (3)
  1. MEDICATION (NOS) [Concomitant]
     Indication: SCHIZOPHRENIA
  2. MEDICATION (NOS) [Concomitant]
     Indication: BIPOLAR DISORDER
  3. TYSABRI [Suspect]
     Indication: MULTIPLE SCLEROSIS
     Route: 042
     Dates: start: 20110610

REACTIONS (2)
  - BIPOLAR DISORDER [None]
  - SCHIZOPHRENIA [None]
